FAERS Safety Report 10314199 (Version 2)
Quarter: 2014Q3

REPORT INFORMATION
  Report Type: Spontaneous
  Country: FR (occurrence: FR)
  Receive Date: 20140718
  Receipt Date: 20140826
  Transmission Date: 20150326
  Serious: Yes (Congenital Anomaly)
  Sender: FDA-Public Use
  Company Number: FR-BRISTOL-MYERS SQUIBB COMPANY-21199377

PATIENT
  Age: 3 Month
  Sex: Female
  Weight: 2.8 kg

DRUGS (3)
  1. REYATAZ [Suspect]
     Active Substance: ATAZANAVIR SULFATE
     Route: 064
  2. NORVIR [Suspect]
     Active Substance: RITONAVIR
     Route: 064
  3. TRUVADA [Suspect]
     Active Substance: EMTRICITABINE\TENOFOVIR DISOPROXIL FUMARATE
     Route: 064

REACTIONS (8)
  - Neonatal alloimmune thrombocytopenia [None]
  - Congenital central nervous system anomaly [Not Recovered/Not Resolved]
  - Foetal distress syndrome [None]
  - Postmature baby [None]
  - Caesarean section [None]
  - Epilepsy congenital [Not Recovered/Not Resolved]
  - Foetal exposure during pregnancy [Not Recovered/Not Resolved]
  - Drug resistance [None]

NARRATIVE: CASE EVENT DATE: 20140414
